FAERS Safety Report 6681911-3 (Version None)
Quarter: 2010Q2

REPORT INFORMATION
  Report Type: 
  Country: None (occurrence: None)
  Receive Date: 20100402
  Receipt Date: 20100324
  Transmission Date: 20101027
  Serious: Yes (Other)
  Sender: FDA-Public Use
  Company Number: AECAN201000089

PATIENT
  Age: 19 Year
  Sex: Male
  Weight: 78.4723 kg

DRUGS (4)
  1. GAMUNEX [Suspect]
     Indication: DERMATOMYOSITIS
     Dosage: 70 GM;QM; IV
     Route: 042
     Dates: start: 20081218, end: 20100219
  2. GAMUNEX [Suspect]
  3. IGIVNEX [Suspect]
     Indication: DERMATOMYOSITIS
     Dosage: 10 GM; TOTAL; IV
     Route: 042
     Dates: start: 20090115, end: 20090115
  4. METHOTREXATE [Concomitant]

REACTIONS (6)
  - CHILLS [None]
  - DEHYDRATION [None]
  - DELIRIUM [None]
  - HEADACHE [None]
  - NAUSEA [None]
  - VOMITING [None]
